FAERS Safety Report 4918814-8 (Version None)
Quarter: 2006Q1

REPORT INFORMATION
  Report Type: 
  Country: None (occurrence: None)
  Receive Date: 20060222
  Receipt Date: 20060203
  Transmission Date: 20060701
  Serious: Yes (Other)
  Sender: FDA-Public Use
  Company Number: JP-ROCHE-436856

PATIENT
  Age: 35 Year
  Sex: Female

DRUGS (1)
  1. TAMIFLU [Suspect]
     Indication: INFLUENZA
     Dosage: DOSE FORM REPORTED AS 'ORAL FORMULATION'
     Route: 048
     Dates: start: 20060115

REACTIONS (1)
  - RETINAL DETACHMENT [None]
